FAERS Safety Report 9575791 (Version 1)
Quarter: 2013Q4

REPORT INFORMATION
  Report Type: Spontaneous
  Country: US (occurrence: US)
  Receive Date: 20131001
  Receipt Date: 20131001
  Transmission Date: 20140711
  Serious: No
  Sender: FDA-Public Use
  Company Number: US-AMGEN-USASP2012073689

PATIENT
  Age: 79 Year
  Sex: Female
  Weight: 79.37 kg

DRUGS (2)
  1. PROCRIT [Suspect]
     Indication: PRODUCT USED FOR UNKNOWN INDICATION
     Dosage: 10000 UNIT, Q6MO
     Route: 058
  2. ANALGESICS [Concomitant]
     Indication: PAIN
     Dosage: UNK

REACTIONS (6)
  - Pain [Not Recovered/Not Resolved]
  - Haemoglobin decreased [Not Recovered/Not Resolved]
  - Wrong technique in drug usage process [Not Recovered/Not Resolved]
  - Drug ineffective [Not Recovered/Not Resolved]
  - Heart sounds abnormal [Not Recovered/Not Resolved]
  - Chest pain [Not Recovered/Not Resolved]
